FAERS Safety Report 16180276 (Version 1)
Quarter: 2019Q2

REPORT INFORMATION
  Report Type: Spontaneous
  Country: ES (occurrence: ES)
  Receive Date: 20190410
  Receipt Date: 20190410
  Transmission Date: 20190711
  Serious: Yes (Other)
  Sender: FDA-Public Use
  Company Number: ES-ASTRAZENECA-2019SE51202

PATIENT
  Sex: Female

DRUGS (2)
  1. ZOMIG [Suspect]
     Active Substance: ZOLMITRIPTAN
     Dosage: M???XIMO 3 AL D???A SEGUN PRECISE5.0MG UNKNOWN
     Route: 065
     Dates: start: 20190101, end: 20190103
  2. ZOMIG [Suspect]
     Active Substance: ZOLMITRIPTAN
     Dosage: M???XIMO 3 AL D???A SEGUN PRECISE5.0MG UNKNOWN
     Route: 065

REACTIONS (2)
  - Anxiety [Unknown]
  - Panic reaction [Unknown]

NARRATIVE: CASE EVENT DATE: 20190101
